FAERS Safety Report 20024249 (Version 1)
Quarter: 2021Q4

REPORT INFORMATION
  Report Type: Spontaneous
  Country: US (occurrence: US)
  Receive Date: 20211102
  Receipt Date: 20211102
  Transmission Date: 20220303
  Serious: No
  Sender: FDA-Public Use
  Company Number: US-PFIZER INC-202101418911

PATIENT
  Age: 36 Year
  Sex: Male

DRUGS (4)
  1. XELJANZ [Suspect]
     Active Substance: TOFACITINIB CITRATE
     Indication: Colitis
     Dosage: 20 MG, DAILY
  2. DULOXETINE HYDROCHLORIDE [Concomitant]
     Active Substance: DULOXETINE HYDROCHLORIDE
  3. CHOLECALCIFEROL [Concomitant]
     Active Substance: CHOLECALCIFEROL
  4. AMPHETAMINE SULFATE [Concomitant]
     Active Substance: AMPHETAMINE SULFATE

REACTIONS (2)
  - Poor peripheral circulation [Recovered/Resolved]
  - Cyanosis [Recovered/Resolved]
